FAERS Safety Report 5295877-4 (Version None)
Quarter: 2007Q1

REPORT INFORMATION
  Report Type: 
  Country: None (occurrence: None)
  Receive Date: 20070201
  Receipt Date: 20061017
  Transmission Date: 20070707
  Serious: No
  Sender: FDA-Public Use
  Company Number: 2006PV023396

PATIENT
  Age: 70 Year
  Sex: Male
  Weight: 92.0802 kg

DRUGS (2)
  1. BYETTA [Suspect]
     Indication: DIABETES MELLITUS NON-INSULIN-DEPENDENT
     Dosage: SEE IMAGE
     Route: 058
     Dates: start: 20050901, end: 20051215
  2. BYETTA [Suspect]
     Indication: DIABETES MELLITUS NON-INSULIN-DEPENDENT
     Dosage: SEE IMAGE
     Route: 058
     Dates: start: 20051216

REACTIONS (6)
  - BACK PAIN [None]
  - BLOOD GLUCOSE FLUCTUATION [None]
  - BURNING SENSATION [None]
  - HYPOAESTHESIA [None]
  - LOCALISED INFECTION [None]
  - PARAESTHESIA [None]
